FAERS Safety Report 6143293-5 (Version None)
Quarter: 2009Q2

REPORT INFORMATION
  Report Type: 
  Country: None (occurrence: None)
  Receive Date: 20090403
  Receipt Date: 20090326
  Transmission Date: 20091009
  Serious: Yes (Other)
  Sender: FDA-Public Use
  Company Number: A0775165A

PATIENT
  Age: 72 Year
  Sex: Male
  Weight: 103 kg

DRUGS (10)
  1. MELPHALAN [Suspect]
     Indication: MULTIPLE MYELOMA
     Dosage: 15MG UNKNOWN
     Route: 048
     Dates: start: 20090220
  2. VELCADE [Suspect]
     Indication: MULTIPLE MYELOMA
     Dosage: 3MG CYCLIC
     Route: 040
     Dates: start: 20090220
  3. PREDNISONE [Suspect]
     Indication: MULTIPLE MYELOMA
     Dosage: 150MG UNKNOWN
     Route: 048
     Dates: start: 20090220
  4. LISINOPRIL [Concomitant]
  5. METOPROLOL [Concomitant]
  6. HYDROCHLOROTHIAZIDE [Concomitant]
  7. SULAR [Concomitant]
  8. KLONOPIN [Concomitant]
  9. PROTONIX [Concomitant]
  10. VENOFER [Concomitant]

REACTIONS (4)
  - ABASIA [None]
  - HAEMATURIA [None]
  - ORCHITIS [None]
  - SCROTAL SWELLING [None]
